FAERS Safety Report 17277663 (Version 1)
Quarter: 2020Q1

REPORT INFORMATION
  Report Type: Spontaneous
  Country: GB (occurrence: GB)
  Receive Date: 20200116
  Receipt Date: 20200116
  Transmission Date: 20200409
  Serious: Yes (Death)
  Sender: FDA-Public Use
  Company Number: NVSC2020GB008730

PATIENT
  Age: 83 Year
  Sex: Female

DRUGS (1)
  1. ETANERCEPT [Suspect]
     Active Substance: ETANERCEPT
     Indication: PRODUCT USED FOR UNKNOWN INDICATION
     Dosage: 50 MG, QW (50 MG, WEEKLY)
     Route: 065
     Dates: start: 20100909

REACTIONS (3)
  - Asthenia [Fatal]
  - Hypercalcaemia [Fatal]
  - Pneumonia [Fatal]
